FAERS Safety Report 7559633-6 (Version None)
Quarter: 2011Q2

REPORT INFORMATION
  Report Type: 
  Country: None (occurrence: None)
  Receive Date: 20110617
  Receipt Date: 20110617
  Transmission Date: 20111010
  Serious: No
  Sender: FDA-Public Use
  Company Number: None

PATIENT
  Age: 63 Year
  Sex: Female
  Weight: 61.2356 kg

DRUGS (1)
  1. AMITIZA [Suspect]
     Indication: IRRITABLE BOWEL SYNDROME
     Dosage: 24 MCG 2 DAILY PO
     Route: 048
     Dates: start: 20090915, end: 20110607

REACTIONS (3)
  - FEELING ABNORMAL [None]
  - ABDOMINAL PAIN UPPER [None]
  - FLATULENCE [None]
